FAERS Safety Report 23693747 (Version 3)
Quarter: 2024Q4

REPORT INFORMATION
  Report Type: Report from Study
  Country: US (occurrence: US)
  Receive Date: 20240401
  Receipt Date: 20241018
  Transmission Date: 20250114
  Serious: Yes (Hospitalization, Other)
  Sender: ABBVIE
  Company Number: US-ABBVIE-5699208

PATIENT
  Sex: Female

DRUGS (2)
  1. SKYRIZI [Suspect]
     Active Substance: RISANKIZUMAB-RZAA
     Indication: Psoriasis
     Route: 058
     Dates: start: 20211217
  2. GABAPENTIN [Concomitant]
     Active Substance: GABAPENTIN
     Indication: Neuralgia
     Route: 065

REACTIONS (15)
  - Cerebrovascular accident [Recovered/Resolved]
  - Pyrexia [Recovered/Resolved]
  - Transient ischaemic attack [Recovered/Resolved]
  - Transient global amnesia [Not Recovered/Not Resolved]
  - Condition aggravated [Recovered/Resolved]
  - Chills [Recovered/Resolved]
  - Memory impairment [Not Recovered/Not Resolved]
  - Hyperhidrosis [Recovered/Resolved]
  - Blister [Recovering/Resolving]
  - Obstruction [Recovered/Resolved]
  - Back pain [Recovering/Resolving]
  - Cellulitis [Recovered/Resolved]
  - Dry skin [Recovered/Resolved]
  - Cellulitis [Recovering/Resolving]
  - Back pain [Recovering/Resolving]

NARRATIVE: CASE EVENT DATE: 20230101
